FAERS Safety Report 5366354-7 (Version None)
Quarter: 2007Q2

REPORT INFORMATION
  Report Type: 
  Country: None (occurrence: None)
  Receive Date: 20070620
  Receipt Date: 20070620
  Transmission Date: 20071010
  Serious: Yes (Hospitalization, Other)
  Sender: FDA-Public Use
  Company Number: None

PATIENT
  Age: 35 Year
  Sex: Female
  Weight: 61.2356 kg

DRUGS (1)
  1. LEVAQUIN [Suspect]
     Indication: RESPIRATORY DISORDER
     Dosage: 500 MG 1 PER DAY PO ONLY TOOK ONE DOSE
     Route: 048
     Dates: start: 20070615, end: 20070615

REACTIONS (9)
  - BACK PAIN [None]
  - DISCOMFORT [None]
  - HEADACHE [None]
  - MUSCULOSKELETAL PAIN [None]
  - PAIN [None]
  - PAIN IN EXTREMITY [None]
  - PAIN IN JAW [None]
  - PALPITATIONS [None]
  - TOOTHACHE [None]
